FAERS Safety Report 17880153 (Version 2)
Quarter: 2020Q2

REPORT INFORMATION
  Report Type: Spontaneous
  Country: CA (occurrence: CA)
  Receive Date: 20200610
  Receipt Date: 20200612
  Transmission Date: 20200714
  Serious: Yes (Death)
  Sender: FDA-Public Use
  Company Number: CA-ROCHE-2612914

PATIENT
  Age: 70 Year
  Sex: Male

DRUGS (5)
  1. LOMUSTINE. [Concomitant]
     Active Substance: LOMUSTINE
  2. ALFUZOSIN [Concomitant]
     Active Substance: ALFUZOSIN
     Route: 065
  3. DUTASTERIDE. [Concomitant]
     Active Substance: DUTASTERIDE
     Route: 065
  4. PHENYTOIN. [Suspect]
     Active Substance: PHENYTOIN
     Indication: SEIZURE
     Route: 048
  5. BEVACIZUMAB. [Suspect]
     Active Substance: BEVACIZUMAB
     Indication: BRAIN NEOPLASM MALIGNANT
     Route: 042

REACTIONS (11)
  - Heart rate decreased [Fatal]
  - Death [Fatal]
  - Balance disorder [Fatal]
  - Visual impairment [Fatal]
  - Fatigue [Fatal]
  - Eastern Cooperative Oncology Group performance status worsened [Fatal]
  - Seizure [Fatal]
  - Speech disorder [Fatal]
  - Blood pressure increased [Fatal]
  - Visual field defect [Fatal]
  - Blindness [Fatal]
